FAERS Safety Report 7086863-2 (Version None)
Quarter: 2010Q4

REPORT INFORMATION
  Report Type: 
  Country: None (occurrence: None)
  Receive Date: 20101105
  Receipt Date: 20100915
  Transmission Date: 20110411
  Serious: Yes (Hospitalization)
  Sender: FDA-Public Use
  Company Number: GB-AMGEN-QUU440037

PATIENT

DRUGS (4)
  1. ETANERCEPT [Suspect]
     Indication: RHEUMATOID ARTHRITIS
     Dosage: 25 MG, 2 TIMES/WK
     Route: 058
     Dates: start: 20060623, end: 20081101
  2. FOLIC ACID [Concomitant]
     Dosage: UNK UNK, UNK
  3. NAPROXEN [Concomitant]
     Dosage: UNK UNK, UNK
  4. METHOTREXATE [Concomitant]
     Dosage: UNK UNK, UNK
     Dates: start: 20050826, end: 20051101

REACTIONS (4)
  - COGNITIVE DISORDER [None]
  - DEMENTIA ALZHEIMER'S TYPE [None]
  - DISINHIBITION [None]
  - MYELODYSPLASTIC SYNDROME TRANSFORMATION [None]
